FAERS Safety Report 9074399 (Version 1)
Quarter: 2013Q1

REPORT INFORMATION
  Report Type: Report from Study
  Country: US (occurrence: US)
  Receive Date: 20130129
  Receipt Date: 20130129
  Transmission Date: 20140127
  Serious: No
  Sender: FDA-Public Use
  Company Number: US-ABBOTT-12P-163-0931111-00

PATIENT
  Age: 20 Year
  Sex: Female

DRUGS (4)
  1. HUMIRA 40 MG/0.8 ML PEN [Suspect]
     Indication: COLITIS ULCERATIVE
     Dosage: LOADING DOSE
     Dates: start: 20120309, end: 20120309
  2. HUMIRA 40 MG/0.8 ML PEN [Suspect]
     Dates: start: 20120323, end: 20120323
  3. HUMIRA 40 MG/0.8 ML PEN [Suspect]
     Dates: start: 20120406, end: 20120406
  4. AZATHIOPRINE [Concomitant]
     Indication: PRODUCT USED FOR UNKNOWN INDICATION
     Dosage: 50 MG X 4 TABS DAILY

REACTIONS (1)
  - Injection site pain [Recovered/Resolved]
